FAERS Safety Report 16010751 (Version 2)
Quarter: 2019Q1

REPORT INFORMATION
  Report Type: Report from Study
  Country: CA (occurrence: CA)
  Receive Date: 20190227
  Receipt Date: 20190325
  Transmission Date: 20190418
  Serious: Yes (Other)
  Sender: FDA-Public Use
  Company Number: CA-ROCHE-2187649

PATIENT
  Age: 35 Year
  Sex: Female
  Weight: 56.75 kg

DRUGS (3)
  1. OCREVUS [Suspect]
     Active Substance: OCRELIZUMAB
     Dosage: SHE SAID THAT SHE TOOK HER SECOND DOSE OF OCRELIZUMAB ON 27/SEP/2018.
     Route: 042
  2. OCREVUS [Suspect]
     Active Substance: OCRELIZUMAB
     Indication: RELAPSING-REMITTING MULTIPLE SCLEROSIS
     Dosage: SHE SAID THAT SHE TOOK HER SECOND DOSE OF OCRELIZUMAB ON 27/SEP/2018.?300 MG DAY 0, 300 MG DAY 14, T
     Route: 042
     Dates: start: 20180913
  3. BENADRYL [Concomitant]
     Active Substance: DIPHENHYDRAMINE HYDROCHLORIDE
     Indication: PREMEDICATION

REACTIONS (21)
  - Abdominal pain [Not Recovered/Not Resolved]
  - Anxiety [Recovering/Resolving]
  - Crying [Recovered/Resolved]
  - Decreased appetite [Recovering/Resolving]
  - Multiple sclerosis relapse [Not Recovered/Not Resolved]
  - Headache [Recovering/Resolving]
  - Hot flush [Recovered/Resolved]
  - Insomnia [Not Recovered/Not Resolved]
  - Fatigue [Recovered/Resolved]
  - Depressed mood [Recovering/Resolving]
  - Weight decreased [Not Recovered/Not Resolved]
  - Sinusitis [Recovering/Resolving]
  - Cognitive disorder [Unknown]
  - Gastroenteritis viral [Unknown]
  - Emotional disorder [Recovered/Resolved]
  - Ill-defined disorder [Not Recovered/Not Resolved]
  - Stress [Recovering/Resolving]
  - Headache [Recovering/Resolving]
  - Visual impairment [Unknown]
  - Nausea [Recovered/Resolved]
  - Eating disorder [Not Recovered/Not Resolved]

NARRATIVE: CASE EVENT DATE: 20180913
